FAERS Safety Report 23187687 (Version 1)
Quarter: 2023Q4

REPORT INFORMATION
  Report Type: Spontaneous
  Country: US (occurrence: US)
  Receive Date: 20231115
  Receipt Date: 20231115
  Transmission Date: 20240110
  Serious: Yes (Other)
  Sender: FDA-Public Use
  Company Number: US-NOVOPROD-1017373

PATIENT
  Age: 23 Month
  Sex: Male

DRUGS (2)
  1. NOVOLOG [Suspect]
     Active Substance: INSULIN ASPART
     Indication: Type 1 diabetes mellitus
     Dosage: UNK
     Route: 058
     Dates: start: 202207
  2. NOVOLOG [Suspect]
     Active Substance: INSULIN ASPART
     Dosage: UNK
     Route: 058

REACTIONS (3)
  - Blood glucose increased [Recovered/Resolved]
  - Product quality issue [Recovered/Resolved]
  - Drug ineffective [Unknown]

NARRATIVE: CASE EVENT DATE: 20221222
